FAERS Safety Report 9081587 (Version 1)
Quarter: 2013Q1

REPORT INFORMATION
  Report Type: Report from Study
  Country: US (occurrence: US)
  Receive Date: 20130130
  Receipt Date: 20130130
  Transmission Date: 20140127
  Serious: No
  Sender: FDA-Public Use
  Company Number: US-ABBOTT-12P-163-0954809-00

PATIENT
  Age: 31 Year
  Sex: Male
  Weight: 76.73 kg

DRUGS (3)
  1. HUMIRA 40 MG/0.8 ML PEN [Suspect]
     Indication: CROHN^S DISEASE
     Dosage: ONCE
     Dates: start: 20120703, end: 20120703
  2. HUMIRA 40 MG/0.8 ML PEN [Suspect]
  3. FLAGYL [Concomitant]
     Indication: CROHN^S DISEASE

REACTIONS (4)
  - Rhinorrhoea [Recovering/Resolving]
  - Influenza like illness [Recovering/Resolving]
  - Pyrexia [Recovering/Resolving]
  - Pain [Recovering/Resolving]
